FAERS Safety Report 7176662-5 (Version None)
Quarter: 2010Q4

REPORT INFORMATION
  Report Type: 
  Country: None (occurrence: None)
  Receive Date: 20101216
  Receipt Date: 20101216
  Transmission Date: 20110411
  Serious: Yes (Hospitalization)
  Sender: FDA-Public Use
  Company Number: None

PATIENT
  Age: 46 Year
  Sex: Male
  Weight: 101.6057 kg

DRUGS (1)
  1. TAMSULOSIN HCL [Suspect]
     Indication: DYSURIA
     Dosage: ONE CAPSULE ONCE A DAY
     Dates: start: 20101005, end: 20101108

REACTIONS (4)
  - HYPOAESTHESIA [None]
  - MUSCLE DISORDER [None]
  - PARAESTHESIA [None]
  - UNEVALUABLE EVENT [None]
